FAERS Safety Report 6438416-4 (Version None)
Quarter: 2009Q4

REPORT INFORMATION
  Report Type: 
  Country: None (occurrence: None)
  Receive Date: 20091109
  Receipt Date: 20091027
  Transmission Date: 20100525
  Serious: Yes (Other)
  Sender: FDA-Public Use
  Company Number: 2009SP033568

PATIENT
  Sex: Male

DRUGS (2)
  1. DECA-DURABOLIN [Suspect]
     Indication: MUSCLE BUILDING THERAPY
     Dosage: 300 MG; IM; 300 MG; IM
     Route: 030
     Dates: start: 20091017, end: 20091017
  2. DECA-DURABOLIN [Suspect]
     Indication: MUSCLE BUILDING THERAPY
     Dosage: 300 MG; IM; 300 MG; IM
     Route: 030
     Dates: start: 20091024, end: 20091024

REACTIONS (2)
  - INFLAMMATION [None]
  - RENAL DISORDER [None]
